FAERS Safety Report 25820874 (Version 1)
Quarter: 2025Q3

REPORT INFORMATION
  Report Type: Report from Study
  Country: US (occurrence: US)
  Receive Date: 20250919
  Receipt Date: 20250919
  Transmission Date: 20251021
  Serious: Yes (Hospitalization)
  Sender: RECORDATI
  Company Number: US-ORPHANEU-2025006601

PATIENT
  Age: 40 Year
  Sex: Female

DRUGS (18)
  1. ISTURISA [Suspect]
     Active Substance: OSILODROSTAT PHOSPHATE
     Indication: Pituitary-dependent Cushing^s syndrome
     Dates: start: 202104
  2. ISTURISA [Suspect]
     Active Substance: OSILODROSTAT PHOSPHATE
  3. ISTURISA [Suspect]
     Active Substance: OSILODROSTAT PHOSPHATE
     Dosage: 5 MG, BID
     Dates: start: 20230110, end: 20241208
  4. ISTURISA [Suspect]
     Active Substance: OSILODROSTAT PHOSPHATE
     Dates: end: 20250120
  5. ISTURISA [Suspect]
     Active Substance: OSILODROSTAT PHOSPHATE
     Dates: start: 20250125
  6. PROMETRIUM [Concomitant]
     Active Substance: PROGESTERONE
     Indication: Hypogonadism
     Dosage: 100 MG, QD
     Route: 048
     Dates: start: 201802, end: 202310
  7. LEVOTHYROXINE [Concomitant]
     Active Substance: LEVOTHYROXINE
     Indication: Central hypothyroidism
     Dosage: 175 MICROGRAM, QD
     Route: 048
     Dates: start: 201802, end: 20230308
  8. LEVOTHYROXINE [Concomitant]
     Active Substance: LEVOTHYROXINE
     Dosage: 150 MICROGRAM, QD
     Route: 048
     Dates: start: 20230309
  9. ESTRADIOL [Concomitant]
     Active Substance: ESTRADIOL
     Indication: Hypogonadism
     Dosage: 2 MG, QD
     Route: 048
     Dates: start: 201802, end: 202310
  10. DDAVP [Concomitant]
     Active Substance: DESMOPRESSIN ACETATE
     Indication: Diabetes insipidus
     Dosage: 0.1 MG, TID
     Route: 048
     Dates: start: 201902, end: 20250131
  11. DDAVP [Concomitant]
     Active Substance: DESMOPRESSIN ACETATE
     Dosage: 0.15 MG, BID
     Route: 048
     Dates: start: 20250131
  12. CELEXA [Concomitant]
     Active Substance: CITALOPRAM HYDROBROMIDE
     Indication: Depression
     Dosage: 40 MG, QD
     Route: 048
     Dates: start: 2018, end: 202408
  13. DOXEPIN [Concomitant]
     Active Substance: DOXEPIN
     Indication: Depression
     Dosage: 10 MG, QD
     Route: 048
     Dates: start: 2021
  14. MELOXICAM [Concomitant]
     Active Substance: MELOXICAM
     Indication: Back pain
     Dosage: 15 MG, BID
     Route: 048
     Dates: start: 2021
  15. SIMVASTATIN [Concomitant]
     Active Substance: SIMVASTATIN
     Indication: Hyperlipidaemia
     Dosage: 10 MG, QD
     Route: 048
     Dates: start: 2021
  16. TRIAMTERENE [Concomitant]
     Active Substance: TRIAMTERENE
     Indication: Peripheral swelling
     Dosage: 100 MG, BID
     Route: 048
     Dates: start: 2022
  17. DULOXETINE [Concomitant]
     Active Substance: DULOXETINE
     Indication: Depression
     Dosage: 30 MG, QD
     Route: 048
     Dates: start: 202409
  18. ETHINYL ESTRADIOL\NORGESTIMATE [Concomitant]
     Active Substance: ETHINYL ESTRADIOL\NORGESTIMATE
     Indication: Hypogonadism
     Dosage: 1 DOSAGE FORM, QD
     Route: 048
     Dates: start: 202310

REACTIONS (2)
  - Gastroenteritis [Recovered/Resolved]
  - Hyponatraemia [Recovered/Resolved]

NARRATIVE: CASE EVENT DATE: 20250106
